FAERS Safety Report 5404476-2 (Version None)
Quarter: 2007Q3

REPORT INFORMATION
  Report Type: 
  Country: None (occurrence: None)
  Receive Date: 20070802
  Receipt Date: 20070721
  Transmission Date: 20080115
  Serious: Yes (Other)
  Sender: FDA-Public Use
  Company Number: US-PFIZER INC-2007061781

PATIENT
  Sex: Female
  Weight: 53.181 kg

DRUGS (7)
  1. CHANTIX [Suspect]
     Indication: SMOKING CESSATION THERAPY
  2. LIPITOR [Concomitant]
  3. EFFEXOR [Concomitant]
  4. ESTROGEN NOS [Concomitant]
  5. VITAMIN CAP [Concomitant]
  6. ASCORBIC ACID [Concomitant]
  7. VITAMIN D [Concomitant]

REACTIONS (4)
  - DEHYDRATION [None]
  - DIARRHOEA [None]
  - MALAISE [None]
  - WEIGHT DECREASED [None]
